FAERS Safety Report 7077157-X (Version None)
Quarter: 2010Q4

REPORT INFORMATION
  Report Type: 
  Country: None (occurrence: None)
  Receive Date: 20101101
  Receipt Date: 20101027
  Transmission Date: 20110411
  Serious: Yes (Life-Threatening, Hospitalization, Other)
  Sender: FDA-Public Use
  Company Number: A0889744A

PATIENT
  Sex: Male
  Weight: 83 kg

DRUGS (3)
  1. AVANDIA [Suspect]
     Dosage: 4MG PER DAY
     Route: 048
     Dates: start: 19960101, end: 20100929
  2. METFORMIN [Concomitant]
     Dates: start: 19940101
  3. INSULIN [Concomitant]
     Dates: start: 20000101

REACTIONS (6)
  - ARTERIAL OCCLUSIVE DISEASE [None]
  - CATHETER PLACEMENT [None]
  - CORONARY ARTERY OCCLUSION [None]
  - FEMORAL ARTERY OCCLUSION [None]
  - MOVEMENT DISORDER [None]
  - PRODUCT QUALITY ISSUE [None]
